FAERS Safety Report 9701834 (Version 1)
Quarter: 2013Q4

REPORT INFORMATION
  Report Type: Spontaneous
  Country: US (occurrence: US)
  Receive Date: 20131121
  Receipt Date: 20131121
  Transmission Date: 20140711
  Serious: No
  Sender: FDA-Public Use
  Company Number: US-PFIZER INC-2013329771

PATIENT
  Age: 83 Year
  Sex: 0

DRUGS (1)
  1. CLINDAMYCIN HCL [Suspect]
     Dosage: 300 MG, UNK

REACTIONS (1)
  - Malaise [Unknown]
